FAERS Safety Report 9341871 (Version 7)
Quarter: 2019Q4

REPORT INFORMATION
  Report Type: Spontaneous
  Country: US (occurrence: US)
  Receive Date: 20130611
  Receipt Date: 20191014
  Transmission Date: 20200122
  Serious: Yes (Hospitalization, Other)
  Sender: FDA-Public Use
  Company Number: US-PFIZER INC-2013174178

PATIENT
  Age: 45 Year
  Sex: Female
  Weight: 63.49 kg

DRUGS (6)
  1. LYRICA [Suspect]
     Active Substance: PREGABALIN
     Dosage: 650 MG, DAILY (TAKE A TOTAL OF 6 OF THE 100 MG A DAY AND 1 OF THE 50 MG A DAY)
  2. NUCYNTA [Suspect]
     Active Substance: TAPENTADOL HYDROCHLORIDE
     Indication: PROCEDURAL PAIN
  3. LYRICA [Suspect]
     Active Substance: PREGABALIN
     Indication: SEIZURE
     Dosage: 650 MG, 2X/DAY(400MG IN MORNING AND 250 MG AT NIGHT )
     Dates: start: 2007
  4. LYRICA [Suspect]
     Active Substance: PREGABALIN
     Dosage: 650 MG, DAILY (TAKE A TOTAL OF 6 OF THE 100 MG A DAY AND 1 OF THE 50 MG A DAY)
  5. LYRICA [Suspect]
     Active Substance: PREGABALIN
     Dosage: UNK
     Dates: start: 2008
  6. NUCYNTA [Suspect]
     Active Substance: TAPENTADOL HYDROCHLORIDE
     Indication: BONE PAIN
     Dosage: UNK
     Dates: end: 2011

REACTIONS (4)
  - Intentional product misuse [Unknown]
  - Overdose [Unknown]
  - Headache [Recovered/Resolved]
  - Generalised tonic-clonic seizure [Recovered/Resolved]
